FAERS Safety Report 7671827-8 (Version None)
Quarter: 2011Q3

REPORT INFORMATION
  Report Type: 
  Country: None (occurrence: None)
  Receive Date: 20110809
  Receipt Date: 20110727
  Transmission Date: 20111222
  Serious: Yes (Death, Other)
  Sender: FDA-Public Use
  Company Number: JP-ROCHE-794439

PATIENT
  Age: 51 Year
  Sex: Male

DRUGS (10)
  1. CYCLOSPORINE [Concomitant]
     Dosage: DOSAGE IS UNCERTAIN.
     Route: 065
  2. PEGASYS [Concomitant]
     Route: 058
  3. METHYLPREDNISOLONE [Concomitant]
     Route: 065
  4. CELLCEPT [Suspect]
     Indication: PROPHYLAXIS AGAINST TRANSPLANT REJECTION
     Dosage: DOSAGE IS UNCERTAIN.
     Route: 048
  5. CELLCEPT [Suspect]
     Dosage: DOSAGE IS UNCERTAIN.
     Route: 048
  6. PREDNISOLONE [Concomitant]
     Dosage: DOSAGE IS UNCERTAIN.
     Route: 065
  7. SIMULECT [Concomitant]
     Dosage: DOSAGE IS UNCERTAIN.
     Route: 042
  8. COPEGUS [Concomitant]
     Route: 048
  9. PEGINTERFERON ALFA-2B [Concomitant]
     Route: 058
  10. TACROLIMUS [Concomitant]
     Dosage: DOSAGE IS UNCERTAIN.
     Route: 065

REACTIONS (8)
  - HYPOPROTEINAEMIA [None]
  - RENAL FAILURE [None]
  - MULTI-ORGAN FAILURE [None]
  - CYTOMEGALOVIRUS INFECTION [None]
  - PNEUMOCYSTIS JIROVECI PNEUMONIA [None]
  - DIABETES MELLITUS [None]
  - HEPATITIS C RNA POSITIVE [None]
  - PROTEINURIA [None]
